FAERS Safety Report 9624736 (Version 2)
Quarter: 2013Q4

REPORT INFORMATION
  Report Type: Spontaneous
  Country: GB (occurrence: GB)
  Receive Date: 20131015
  Receipt Date: 20131015
  Transmission Date: 20140711
  Serious: Yes (Death)
  Sender: FDA-Public Use
  Company Number: GB-PFIZER INC-2011080327

PATIENT
  Age: 55 Year
  Sex: Male

DRUGS (8)
  1. CYCLOPHOSPHAMIDE [Suspect]
     Indication: BURKITT^S LYMPHOMA
  2. DOXORUBICIN [Suspect]
     Indication: BURKITT^S LYMPHOMA
  3. METHOTREXATE SODIUM [Suspect]
     Indication: BURKITT^S LYMPHOMA
  4. CYTARABINE [Suspect]
     Indication: BURKITT^S LYMPHOMA
  5. IFOSFAMIDE [Suspect]
     Indication: BURKITT^S LYMPHOMA
  6. VINCRISTINE SULFATE [Suspect]
     Indication: BURKITT^S LYMPHOMA
  7. ETOPOSIDE [Suspect]
     Indication: BURKITT^S LYMPHOMA
  8. MESNA [Suspect]
     Indication: BURKITT^S LYMPHOMA

REACTIONS (1)
  - Toxicity to various agents [Fatal]
